FAERS Safety Report 23759554 (Version 1)
Quarter: 2024Q2

REPORT INFORMATION
  Report Type: Spontaneous
  Country: US (occurrence: None)
  Receive Date: 20240418
  Receipt Date: 20240418
  Transmission Date: 20240716
  Serious: No
  Sender: FDA-Public Use
  Company Number: US-ROCHE-3243680

PATIENT
  Age: 80 Year
  Sex: Female
  Weight: 79.495 kg

DRUGS (10)
  1. ESBRIET [Suspect]
     Active Substance: PIRFENIDONE
     Indication: Product used for unknown indication
     Route: 065
  2. PREDNISONE [Suspect]
     Active Substance: PREDNISONE
     Indication: Product used for unknown indication
     Route: 048
     Dates: start: 202208
  3. TYVASO [Suspect]
     Active Substance: TREPROSTINIL
     Indication: Pulmonary arterial hypertension
     Dosage: CONCENTRATION OF 0.6 MG/ML
     Route: 065
     Dates: start: 20220826
  4. TYVASO [Suspect]
     Active Substance: TREPROSTINIL
     Dosage: 18MCG
     Route: 065
     Dates: start: 2022
  5. TYVASO [Suspect]
     Active Substance: TREPROSTINIL
     Dosage: 54MCG
     Route: 065
  6. TYVASO [Suspect]
     Active Substance: TREPROSTINIL
     Route: 065
  7. TYVASO [Suspect]
     Active Substance: TREPROSTINIL
     Route: 055
  8. TYVASO [Suspect]
     Active Substance: TREPROSTINIL
     Route: 055
     Dates: start: 20221230
  9. TYVASO [Suspect]
     Active Substance: TREPROSTINIL
     Route: 055
  10. TYVASO [Suspect]
     Active Substance: TREPROSTINIL
     Route: 055

REACTIONS (13)
  - Weight fluctuation [Unknown]
  - Tremor [Unknown]
  - Fatigue [Unknown]
  - Dizziness [Unknown]
  - Flushing [Unknown]
  - Emotional disorder [Unknown]
  - Aphonia [Unknown]
  - Cough [Unknown]
  - Productive cough [Unknown]
  - Rhinorrhoea [Unknown]
  - Swelling [Recovering/Resolving]
  - Sinus disorder [Unknown]
  - Weight increased [Recovering/Resolving]
